FAERS Safety Report 7934951-8 (Version None)
Quarter: 2011Q4

REPORT INFORMATION
  Report Type: 
  Country: None (occurrence: None)
  Receive Date: 20111122
  Receipt Date: 20111115
  Transmission Date: 20120403
  Serious: Yes (Death, Hospitalization)
  Sender: FDA-Public Use
  Company Number: JP-GENZYME-THYM-1001871

PATIENT
  Sex: Male
  Weight: 60 kg

DRUGS (41)
  1. FLUDARABINE PHOSPHATE [Concomitant]
     Dosage: UNK
     Dates: start: 20100615, end: 20100619
  2. BUSULFAN [Concomitant]
     Indication: BONE MARROW CONDITIONING REGIMEN
     Dosage: UNK
     Dates: start: 20100507, end: 20100510
  3. ACYCLOVIR [Concomitant]
     Dosage: UNK
     Dates: start: 20100614, end: 20100704
  4. MINOCYCLINE HCL [Concomitant]
     Indication: INFECTION PROPHYLAXIS
     Dosage: UNK
     Dates: start: 20100621, end: 20100623
  5. THYMOGLOBULIN [Suspect]
     Dosage: 30 MG, QD
     Route: 042
     Dates: start: 20100510, end: 20100510
  6. THYMOGLOBULIN [Suspect]
     Dosage: 120 MG, QD
     Route: 042
     Dates: start: 20100511, end: 20100512
  7. METHYLPREDNISOLONE SODIUM SUCCINATE [Concomitant]
     Indication: PREMEDICATION
     Dosage: UNK
     Dates: start: 20100510, end: 20100512
  8. METHOTREXATE [Concomitant]
     Indication: PROPHYLAXIS AGAINST GRAFT VERSUS HOST DISEASE
     Dosage: UNK
     Dates: start: 20100514, end: 20100519
  9. ACYCLOVIR [Concomitant]
     Indication: INFECTION PROPHYLAXIS
     Dosage: UNK
     Dates: start: 20100607, end: 20100614
  10. FLURBIPROFEN [Concomitant]
     Indication: PREMEDICATION
     Dosage: UNK
     Dates: start: 20100621, end: 20100621
  11. TEICOPLANIN [Concomitant]
     Indication: INFECTION PROPHYLAXIS
     Dosage: UNK
     Dates: start: 20100622, end: 20100703
  12. OMEPRAZOLE [Concomitant]
     Indication: PROPHYLAXIS
     Dosage: UNK
     Dates: start: 20100621, end: 20100704
  13. FILGRASTIM [Concomitant]
     Indication: MYELODYSPLASTIC SYNDROME
     Dosage: UNK
     Dates: start: 20100623, end: 20100704
  14. THROMBOMODULIN ALFA [Concomitant]
     Indication: PROPHYLAXIS
     Dosage: UNK
     Dates: start: 20100629, end: 20100704
  15. MEROPENEM [Concomitant]
     Indication: INFECTION PROPHYLAXIS
     Dosage: UNK
     Dates: start: 20100628, end: 20100704
  16. RED BLOOD CELLS, CONCENTRATED [Concomitant]
     Indication: MYELODYSPLASTIC SYNDROME
     Dosage: UNK
     Dates: start: 20100510, end: 20100714
  17. METHYLPREDNISOLONE SODIUM SUCCINATE [Concomitant]
     Dosage: UNK
     Dates: start: 20100621, end: 20100628
  18. TACROLIMUS [Concomitant]
     Indication: PROPHYLAXIS AGAINST GRAFT VERSUS HOST DISEASE
     Dosage: UNK
     Dates: start: 20100512, end: 20100610
  19. DORIPENEM HYDRATE [Concomitant]
     Indication: PROPHYLAXIS
     Dosage: UNK
     Dates: start: 20100512, end: 20100603
  20. PLATELETS, CONCENTRATED [Concomitant]
     Indication: MYELODYSPLASTIC SYNDROME
     Dosage: UNK
     Dates: start: 20100510, end: 20100714
  21. CIPROFLOXACIN HCL [Concomitant]
     Indication: INFECTION PROPHYLAXIS
     Dosage: UNK
     Dates: start: 20100621, end: 20100623
  22. SULTAMICILLIN TOSILATE [Concomitant]
     Indication: INFECTION PROPHYLAXIS
     Dosage: UNK
     Dates: start: 20100624, end: 20100628
  23. THYMOGLOBULIN [Suspect]
     Indication: BONE MARROW CONDITIONING REGIMEN
     Dosage: 150 MG, QD
     Route: 042
     Dates: start: 20100621, end: 20100621
  24. MELPHALAN HYDROCHLORIDE [Concomitant]
     Indication: BONE MARROW CONDITIONING REGIMEN
     Dosage: UNK
     Dates: start: 20100619, end: 20100620
  25. TACROLIMUS [Concomitant]
     Dosage: UNK
     Dates: start: 20100621, end: 20100627
  26. DEXCHLORPHENIRAMINE MALEATE [Concomitant]
     Indication: PREMEDICATION
     Dosage: UNK
     Dates: start: 20100513, end: 20100513
  27. MICAFUNGIN SODIUM [Concomitant]
     Dosage: UNK
     Dates: start: 20100621, end: 20100704
  28. ITRACONAZOLE [Concomitant]
     Indication: INFECTION PROPHYLAXIS
     Dosage: UNK
     Dates: start: 20100609, end: 20100614
  29. MELPHALAN HYDROCHLORIDE [Concomitant]
     Dosage: UNK
     Dates: start: 20100619, end: 20100620
  30. FREEZE-DRIED ION-EXCHANGE RESIN [Concomitant]
     Dosage: UNK
     Dates: start: 20100615, end: 20100617
  31. CLINDAMYCIN HCL [Concomitant]
     Indication: INFECTION PROPHYLAXIS
     Dosage: UNK
     Dates: start: 20100622, end: 20100624
  32. FLUDARABINE PHOSPHATE [Concomitant]
     Indication: BONE MARROW CONDITIONING REGIMEN
     Dosage: UNK
     Dates: start: 20100507, end: 20100510
  33. RAMOSETRON HYDROCHLORIDE [Concomitant]
     Indication: PROPHYLAXIS
     Dosage: UNK
     Dates: start: 20100507, end: 20100513
  34. LENOGRASTIM [Concomitant]
     Indication: MYELODYSPLASTIC SYNDROME
     Dosage: UNK
     Dates: start: 20100514, end: 20100613
  35. EPOETIN BETA [Concomitant]
     Indication: MYELODYSPLASTIC SYNDROME
     Dosage: UNK
     Dates: start: 20100608, end: 20100611
  36. FREEZE-DRIED ION-EXCHANGE RESIN [Concomitant]
     Indication: INFECTION PROPHYLAXIS
     Dosage: UNK
     Dates: start: 20100630, end: 20100702
  37. DEXCHLORPHENIRAMINE MALEATE [Concomitant]
     Indication: PROPHYLAXIS
     Dosage: UNK
     Dates: start: 20100614, end: 20100620
  38. LEUCOVORIN CALCIUM [Concomitant]
     Indication: PROPHYLAXIS
  39. MICAFUNGIN SODIUM [Concomitant]
     Indication: INFECTION PROPHYLAXIS
     Dosage: UNK
     Dates: start: 20100520, end: 20100606
  40. VANCOMYCIN HYCHLORIDE [Concomitant]
     Indication: INFECTION PROPHYLAXIS
     Dosage: UNK
     Dates: start: 20100614, end: 20100618
  41. BIAPENEM [Concomitant]
     Indication: INFECTION PROPHYLAXIS
     Dosage: UNK
     Dates: start: 20100614, end: 20100618

REACTIONS (7)
  - CEREBRAL HAEMORRHAGE [None]
  - THROMBOTIC MICROANGIOPATHY [None]
  - RENAL DISORDER [None]
  - LIVER DISORDER [None]
  - FEBRILE NEUTROPENIA [None]
  - PULMONARY OEDEMA [None]
  - HEPATOMEGALY [None]
